FAERS Safety Report 23523017 (Version 1)
Quarter: 2024Q1

REPORT INFORMATION
  Report Type: Spontaneous
  Country: GB (occurrence: GB)
  Receive Date: 20240214
  Receipt Date: 20240214
  Transmission Date: 20240409
  Serious: Yes (Other)
  Sender: FDA-Public Use
  Company Number: None

PATIENT
  Age: 34 Year
  Sex: Female
  Weight: 89 kg

DRUGS (9)
  1. TACROLIMUS [Suspect]
     Active Substance: TACROLIMUS
     Indication: Product used for unknown indication
     Dosage: 1 DOSAGE FORM, TO ALL AREAS OF SKIN WHICH R...
     Dates: start: 20231128
  2. TACROLIMUS [Suspect]
     Active Substance: TACROLIMUS
     Indication: Product used for unknown indication
     Dosage: 1 DOSAGE FORM, TO ALL AREAS OF SKIN WHICH R...
     Dates: start: 20231128
  3. CYCLIZINE [Concomitant]
     Active Substance: CYCLIZINE
     Indication: Product used for unknown indication
     Dosage: UP TO THREE TIMES DAILY WHEN REQUIRED, 1 DOSAGE FORM
     Dates: start: 20240124
  4. CODEINE PHOSPHATE [Concomitant]
     Active Substance: CODEINE PHOSPHATE
     Indication: Pain
     Dosage: 1 DOSAGE FORM
     Dates: start: 20240124
  5. MOMETASONE [Concomitant]
     Active Substance: MOMETASONE
     Indication: Product used for unknown indication
     Dosage: APPLY TO BODY AND LIMBS, 1 DOSAGE FORM
     Dates: start: 20231128
  6. FLUOXETINE [Concomitant]
     Active Substance: FLUOXETINE HYDROCHLORIDE
     Indication: Product used for unknown indication
     Dosage: USE AS DIRECTED- TAKE WITH 20MG TO MAKE 30MG IN...
     Dates: start: 20230601
  7. CLOBETASONE BUTYRATE [Concomitant]
     Active Substance: CLOBETASONE BUTYRATE
     Indication: Product used for unknown indication
     Dosage: APPLY TO FLEXURES, 1 DOSAGE FORM
     Dates: start: 20231128
  8. ALBUTEROL [Concomitant]
     Active Substance: ALBUTEROL
     Indication: Product used for unknown indication
     Dosage: 1 -2 PUFFS 4 HRLY AS REQUIRED
     Dates: start: 20230601
  9. BUDESONIDE\FORMOTEROL [Concomitant]
     Active Substance: BUDESONIDE\FORMOTEROL
     Indication: Product used for unknown indication
     Dosage: 1 DOSAGE FORM, ONE PUFF TO BE TAKEN TWICE DAILY AND MART DOSE...
     Dates: start: 20230601

REACTIONS (2)
  - Pain [Unknown]
  - Burning sensation [Recovering/Resolving]
